FAERS Safety Report 7048476-8 (Version None)
Quarter: 2010Q4

REPORT INFORMATION
  Report Type: 
  Country: None (occurrence: None)
  Receive Date: 20101015
  Receipt Date: 20101015
  Transmission Date: 20110411
  Serious: Yes (Hospitalization)
  Sender: FDA-Public Use
  Company Number: None

PATIENT
  Age: 64 Year
  Sex: Male
  Weight: 180 kg

DRUGS (2)
  1. GLIPIZIDE [Suspect]
     Indication: TYPE 2 DIABETES MELLITUS
     Dosage: 20 MG AM PO
     Route: 048
     Dates: start: 20090506
  2. PIOGLITAZONE [Suspect]
     Indication: TYPE 2 DIABETES MELLITUS
     Dosage: 30 MG EVERY DAY PO
     Route: 048
     Dates: start: 20091202, end: 20101010

REACTIONS (2)
  - HYPOGLYCAEMIA [None]
  - SYNCOPE [None]
